FAERS Safety Report 11223843 (Version 1)
Quarter: 2015Q2

REPORT INFORMATION
  Report Type: Spontaneous
  Country: US (occurrence: None)
  Receive Date: 20150625
  Receipt Date: 20150625
  Transmission Date: 20150821
  Serious: Yes (Other)
  Sender: FDA-Public Use
  Company Number: None

PATIENT
  Age: 66 Year
  Sex: Female

DRUGS (1)
  1. PROLIA [Suspect]
     Active Substance: DENOSUMAB
     Indication: OSTEOPOROSIS
     Dosage: 60 MG/ML PFS EVERY 6 MONTHS SUBCUTANEOUSLY
     Route: 058
     Dates: start: 20120419, end: 20150624

REACTIONS (1)
  - Pain [None]

NARRATIVE: CASE EVENT DATE: 20150624
